FAERS Safety Report 23795206 (Version 1)
Quarter: 2024Q2

REPORT INFORMATION
  Report Type: Spontaneous
  Country: IN (occurrence: IN)
  Receive Date: 20240429
  Receipt Date: 20240429
  Transmission Date: 20240715
  Serious: Yes (Other)
  Sender: FDA-Public Use
  Company Number: IN-SUN PHARMACEUTICAL INDUSTRIES LTD-2024R1-443147

PATIENT
  Age: 27 Year
  Sex: Male

DRUGS (3)
  1. TRIHEXYPHENIDYL [Suspect]
     Active Substance: TRIHEXYPHENIDYL
     Indication: Muscle contractions involuntary
     Dosage: 6 MILLIGRAM, QD
     Route: 065
  2. TETRABENAZINE [Suspect]
     Active Substance: TETRABENAZINE
     Indication: Muscle contractions involuntary
     Dosage: 50 MILLIGRAM, QD
     Route: 065
  3. DIAZEPAM [Suspect]
     Active Substance: DIAZEPAM
     Indication: Muscle contractions involuntary
     Dosage: 5 MILLIGRAM, QD
     Route: 065

REACTIONS (3)
  - Therapeutic response decreased [Unknown]
  - Tardive dyskinesia [Unknown]
  - Personality disorder [Unknown]
